FAERS Safety Report 7796633-5 (Version None)
Quarter: 2011Q4

REPORT INFORMATION
  Report Type: 
  Country: None (occurrence: None)
  Receive Date: 20111005
  Receipt Date: 20110408
  Transmission Date: 20120403
  Serious: No
  Sender: FDA-Public Use
  Company Number: US-BAYER-2011-031933

PATIENT
  Age: 31 Year
  Sex: Female
  Weight: 59.864 kg

DRUGS (3)
  1. HUMIRA [Suspect]
     Indication: CROHN'S DISEASE
     Dosage: 40 MG, OW
     Dates: start: 20090101, end: 20100110
  2. CIPROFLOXACIN [Suspect]
     Indication: ABSCESS
     Dosage: UNK
  3. CIPROFLOXACIN [Suspect]
     Dosage: UNK
     Dates: start: 20091201

REACTIONS (6)
  - MUSCLE SPASMS [None]
  - PARAESTHESIA [None]
  - CROHN'S DISEASE [None]
  - PARAESTHESIA ORAL [None]
  - HYPOAESTHESIA [None]
  - PERIPHERAL COLDNESS [None]
